FAERS Safety Report 24995086 (Version 3)
Quarter: 2025Q1

REPORT INFORMATION
  Report Type: Spontaneous
  Country: ES (occurrence: ES)
  Receive Date: 20250221
  Receipt Date: 20250304
  Transmission Date: 20250409
  Serious: Yes (Other)
  Sender: ROCHE
  Company Number: ES-ROCHE-10000200646

PATIENT
  Age: 95 Year
  Sex: Female

DRUGS (1)
  1. VABYSMO [Suspect]
     Active Substance: FARICIMAB-SVOA
     Indication: Neovascular age-related macular degeneration
     Route: 050

REACTIONS (6)
  - Eye inflammation [Unknown]
  - Pain [Unknown]
  - Ocular hyperaemia [Unknown]
  - Blindness [Unknown]
  - Uveitis [Unknown]
  - Keratic precipitates [Unknown]
